FAERS Safety Report 13850112 (Version 1)
Quarter: 2017Q3

REPORT INFORMATION
  Report Type: Spontaneous
  Country: US (occurrence: US)
  Receive Date: 20170809
  Receipt Date: 20170809
  Transmission Date: 20171127
  Serious: Yes (Other)
  Sender: FDA-Public Use
  Company Number: US-AMGEN-USASP2017117730

PATIENT
  Sex: Female

DRUGS (5)
  1. ENBREL [Suspect]
     Active Substance: ETANERCEPT
     Indication: PRODUCT USED FOR UNKNOWN INDICATION
     Dosage: UNK
     Route: 065
  2. MTX [Suspect]
     Active Substance: METHOTREXATE SODIUM
     Indication: PRODUCT USED FOR UNKNOWN INDICATION
     Dosage: 20 MG, QWK
     Route: 065
  3. XELJANZ XR [Suspect]
     Active Substance: TOFACITINIB CITRATE
     Indication: PRODUCT USED FOR UNKNOWN INDICATION
     Dosage: UNK
     Route: 065
     Dates: start: 201704
  4. MTX [Suspect]
     Active Substance: METHOTREXATE SODIUM
     Dosage: 20 MG, QWK
     Route: 065
     Dates: start: 201704
  5. LYRICA [Concomitant]
     Active Substance: PREGABALIN
     Indication: PRODUCT USED FOR UNKNOWN INDICATION
     Dosage: UNK
     Route: 065
     Dates: start: 2010

REACTIONS (22)
  - Fall [Unknown]
  - Asthenia [Unknown]
  - Headache [Unknown]
  - Sinus pain [Unknown]
  - Fibula fracture [Unknown]
  - Joint range of motion decreased [Unknown]
  - Visual acuity reduced [Unknown]
  - Carpal tunnel syndrome [Unknown]
  - Vitamin D deficiency [Unknown]
  - Dry eye [Unknown]
  - Arthralgia [Unknown]
  - Fatigue [Unknown]
  - Tenderness [Unknown]
  - Fibromyalgia [Unknown]
  - Ocular hyperaemia [Unknown]
  - Blood glucose abnormal [Unknown]
  - Tibia fracture [Unknown]
  - Myalgia [Unknown]
  - Musculoskeletal stiffness [Unknown]
  - Insomnia [Unknown]
  - Muscular weakness [Unknown]
  - Dry mouth [Unknown]

NARRATIVE: CASE EVENT DATE: 2017
